FAERS Safety Report 26082907 (Version 2)
Quarter: 2025Q4

REPORT INFORMATION
  Report Type: Spontaneous
  Country: US (occurrence: US)
  Receive Date: 20251124
  Receipt Date: 20251128
  Transmission Date: 20260117
  Serious: Yes (Hospitalization)
  Sender: TEVA
  Company Number: US-TEVA-VS-3394804

PATIENT
  Age: 3 Year
  Sex: Male

DRUGS (1)
  1. HYDROXYUREA [Suspect]
     Active Substance: HYDROXYUREA
     Indication: Sickle cell disease
     Dosage: RECEIVED 21 ML DAILY FOR 22 DAYS (150 MG/KG/DOSE); THE MEDICATION BOTTLE INSTRUCTION STATED, ^TAK...
     Route: 048

REACTIONS (4)
  - Pancytopenia [Recovered/Resolved]
  - Febrile neutropenia [Recovered/Resolved]
  - Product prescribing issue [Unknown]
  - Accidental overdose [Unknown]
